FAERS Safety Report 4810949-3 (Version None)
Quarter: 2005Q4

REPORT INFORMATION
  Report Type: 
  Country: None (occurrence: None)
  Receive Date: 20051027
  Receipt Date: 20051018
  Transmission Date: 20060501
  Serious: Yes (Other)
  Sender: FDA-Public Use
  Company Number: GB-ABBOTT-05P-167-0314495-00

PATIENT
  Age: 16 Year
  Sex: Female

DRUGS (1)
  1. EPILIM [Suspect]
     Indication: AUTOMATISM EPILEPTIC
     Route: 048
     Dates: start: 19981211

REACTIONS (1)
  - ONYCHOLYSIS [None]
